FAERS Safety Report 4951937-6 (Version None)
Quarter: 2006Q1

REPORT INFORMATION
  Report Type: 
  Country: None (occurrence: None)
  Receive Date: 20060320
  Receipt Date: 20060315
  Transmission Date: 20060701
  Serious: Yes (Hospitalization)
  Sender: FDA-Public Use
  Company Number: 200511231BVD

PATIENT
  Age: 71 Year
  Sex: Male
  Weight: 71 kg

DRUGS (18)
  1. SORAFENIB [Suspect]
     Indication: METASTATIC RENAL CELL CARCINOMA
     Dosage: SEE IMAGE
     Route: 048
     Dates: start: 20041213, end: 20050127
  2. SORAFENIB [Suspect]
     Indication: METASTATIC RENAL CELL CARCINOMA
     Dosage: SEE IMAGE
     Route: 048
     Dates: start: 20050127, end: 20050314
  3. SORAFENIB [Suspect]
     Indication: METASTATIC RENAL CELL CARCINOMA
     Dosage: SEE IMAGE
     Route: 048
     Dates: start: 20050314, end: 20050606
  4. SORAFENIB [Suspect]
     Indication: METASTATIC RENAL CELL CARCINOMA
     Dosage: SEE IMAGE
     Route: 048
     Dates: start: 20050422, end: 20050606
  5. SORAFENIB [Suspect]
     Indication: METASTATIC RENAL CELL CARCINOMA
     Dosage: SEE IMAGE
     Route: 048
     Dates: start: 20050606, end: 20050808
  6. SORAFENIB [Suspect]
     Indication: METASTATIC RENAL CELL CARCINOMA
     Dosage: SEE IMAGE
     Route: 048
     Dates: start: 20050808, end: 20051013
  7. SORAFENIB [Suspect]
     Indication: METASTATIC RENAL CELL CARCINOMA
     Dosage: SEE IMAGE
     Route: 048
     Dates: start: 20051031, end: 20051219
  8. SORAFENIB [Suspect]
     Indication: METASTATIC RENAL CELL CARCINOMA
     Dosage: SEE IMAGE
     Route: 048
     Dates: start: 20060103, end: 20060107
  9. CONCOR [Concomitant]
  10. MODURETIC 5-50 [Concomitant]
  11. ACETAMINOPHEN [Concomitant]
  12. ALLOPURINOL [Concomitant]
  13. OMEBETA [Concomitant]
  14. AMINEURIN [Concomitant]
  15. DUSODRIL [Concomitant]
  16. ISOCOR [Concomitant]
  17. CORVATON RETARD [Concomitant]
  18. TAVOR [Concomitant]

REACTIONS (1)
  - CONDITION AGGRAVATED [None]
